FAERS Safety Report 6636871-8 (Version None)
Quarter: 2010Q1

REPORT INFORMATION
  Report Type: 
  Country: None (occurrence: None)
  Receive Date: 20100316
  Receipt Date: 20100309
  Transmission Date: 20100710
  Serious: Yes (Hospitalization)
  Sender: FDA-Public Use
  Company Number: IE-BAYER-201012203GPV

PATIENT
  Age: 50 Year
  Sex: Female

DRUGS (1)
  1. ULTRAVIST 300 [Suspect]
     Indication: COMPUTERISED TOMOGRAM ABDOMEN
     Dosage: TOTAL DAILY DOSE: 95 ML
     Route: 042
     Dates: start: 20100115, end: 20100115

REACTIONS (9)
  - ANAPHYLACTIC REACTION [None]
  - CONVULSION [None]
  - DEPRESSED LEVEL OF CONSCIOUSNESS [None]
  - FACE OEDEMA [None]
  - HYPERSENSITIVITY [None]
  - HYPOTENSION [None]
  - URINARY INCONTINENCE [None]
  - URTICARIA [None]
  - VOMITING [None]
